FAERS Safety Report 5866131-4 (Version None)
Quarter: 2008Q3

REPORT INFORMATION
  Report Type: 
  Country: None (occurrence: None)
  Receive Date: 20080829
  Receipt Date: 20080818
  Transmission Date: 20090109
  Serious: Yes (Other)
  Sender: FDA-Public Use
  Company Number: US-PFIZER INC-2008069708

PATIENT
  Sex: Female
  Weight: 86.2 kg

DRUGS (1)
  1. DILANTIN [Suspect]
     Indication: CONVULSION

REACTIONS (16)
  - ADVERSE DRUG REACTION [None]
  - BRONCHITIS [None]
  - CHEST PAIN [None]
  - CONVULSION [None]
  - COUGH [None]
  - DIARRHOEA [None]
  - DIZZINESS [None]
  - DYSPNOEA [None]
  - FATIGUE [None]
  - GASTROOESOPHAGEAL REFLUX DISEASE [None]
  - HAEMATEMESIS [None]
  - NAUSEA [None]
  - PNEUMONIA [None]
  - RETCHING [None]
  - THROAT TIGHTNESS [None]
  - WEIGHT DECREASED [None]
